FAERS Safety Report 19964396 (Version 2)
Quarter: 2021Q4

REPORT INFORMATION
  Report Type: Spontaneous
  Country: CN (occurrence: CN)
  Receive Date: 20211018
  Receipt Date: 20211121
  Transmission Date: 20220303
  Serious: Yes (Hospitalization, Other)
  Sender: FDA-Public Use
  Company Number: CN-009507513-2110CHN003836

PATIENT
  Age: 54 Year
  Sex: Male

DRUGS (2)
  1. PEMBROLIZUMAB [Suspect]
     Active Substance: PEMBROLIZUMAB
     Indication: Oesophageal squamous cell carcinoma
     Dosage: 200 MILLIGRAM, ON THE FIRST DAY OF A CYCLICAL
     Dates: start: 20190215
  2. IRINOTECAN [Suspect]
     Active Substance: IRINOTECAN
     Indication: Oesophageal squamous cell carcinoma
     Dosage: 400 MILLIGRAM, ON THE SECOND DAY OF A CYCLE
     Dates: start: 20190216

REACTIONS (3)
  - Tumour hyperprogression [Unknown]
  - Jaundice cholestatic [Unknown]
  - Product use issue [Unknown]

NARRATIVE: CASE EVENT DATE: 20190101
